FAERS Safety Report 13289280 (Version 4)
Quarter: 2017Q2

REPORT INFORMATION
  Report Type: Spontaneous
  Country: US (occurrence: US)
  Receive Date: 20170303
  Receipt Date: 20170606
  Transmission Date: 20170830
  Serious: Yes (Other)
  Sender: FDA-Public Use
  Company Number: US-AMGEN-USASP2017031914

PATIENT
  Age: 16 Year
  Sex: Female
  Weight: 46.3 kg

DRUGS (8)
  1. EPOGEN [Suspect]
     Active Substance: ERYTHROPOIETIN
     Indication: CHRONIC KIDNEY DISEASE
     Dosage: 4000 UNIT, 3 TIMES/WK
     Route: 042
     Dates: start: 20161104, end: 201612
  2. EPOGEN [Suspect]
     Active Substance: ERYTHROPOIETIN
     Indication: HAEMODIALYSIS
     Dosage: 6000 UNIT, 3 TIMES/WK
     Route: 042
     Dates: start: 20161209, end: 201701
  3. MYCOPHENOLATE [Concomitant]
     Active Substance: MYCOPHENOLIC ACID
     Dosage: UNK, MG, QD
     Route: 048
     Dates: start: 201606
  4. TACROLIMUS. [Concomitant]
     Active Substance: TACROLIMUS
     Dosage: UNK, MG, BID
     Route: 048
     Dates: start: 201606
  5. ENOXAPARIN [Concomitant]
     Active Substance: ENOXAPARIN
     Indication: THROMBOSIS
     Dosage: 24 MG, QD
     Route: 058
     Dates: start: 201606
  6. EPOGEN [Suspect]
     Active Substance: ERYTHROPOIETIN
     Indication: NEPHROGENIC ANAEMIA
     Dosage: 2000 UNIT, 3 TIMES/WK ON MWF
     Route: 042
     Dates: start: 20160923, end: 201611
  7. URSODIOL. [Concomitant]
     Active Substance: URSODIOL
     Dosage: UNK, MG, QD
     Route: 048
  8. EPOGEN [Suspect]
     Active Substance: ERYTHROPOIETIN
     Dosage: 10000 UNIT, 3 TIMES/WK
     Route: 042
     Dates: start: 20170118

REACTIONS (2)
  - Therapy non-responder [Unknown]
  - Aplasia pure red cell [Unknown]

NARRATIVE: CASE EVENT DATE: 20170221
